FAERS Safety Report 8721249 (Version 11)
Quarter: 2015Q1

REPORT INFORMATION
  Report Type: Report from Study
  Country: SI (occurrence: SI)
  Receive Date: 20120813
  Receipt Date: 20150303
  Transmission Date: 20150721
  Serious: Yes (Hospitalization, Other)
  Sender: FDA-Public Use
  Company Number: SI-ROCHE-1099321

PATIENT
  Age: 71 Year
  Sex: Female
  Weight: 67 kg

DRUGS (9)
  1. VEMURAFENIB [Suspect]
     Active Substance: VEMURAFENIB
     Indication: MALIGNANT MELANOMA
     Dosage: LAST DOSE PRIOR TO SAE: 30/JUL/2012
     Route: 048
     Dates: start: 20120604, end: 20120830
  2. CONCOR [Concomitant]
     Active Substance: BISOPROLOL FUMARATE
     Route: 065
     Dates: start: 2012
  3. ALPHA D3 [Concomitant]
     Route: 065
     Dates: start: 2010
  4. SELDIAR [Concomitant]
     Route: 065
     Dates: start: 20120730
  5. NEXIUM [Concomitant]
     Active Substance: ESOMEPRAZOLE MAGNESIUM
     Route: 065
     Dates: start: 20120809
  6. ENAP-H [Concomitant]
     Route: 065
     Dates: start: 2007
  7. MEDROL [Concomitant]
     Active Substance: METHYLPREDNISOLONE
     Route: 065
     Dates: start: 2010
  8. CONCOR [Concomitant]
     Active Substance: BISOPROLOL FUMARATE
     Route: 065
     Dates: start: 2012
  9. ALPHA D3 [Concomitant]
     Route: 065
     Dates: start: 2010

REACTIONS (2)
  - Nephropathy [Recovered/Resolved]
  - Squamous cell carcinoma of skin [Recovered/Resolved]

NARRATIVE: CASE EVENT DATE: 20120730
